FAERS Safety Report 5384823-0 (Version None)
Quarter: 2007Q3

REPORT INFORMATION
  Report Type: 
  Country: None (occurrence: None)
  Receive Date: 20070711
  Receipt Date: 20070704
  Transmission Date: 20080115
  Serious: Yes (Death, Hospitalization)
  Sender: FDA-Public Use
  Company Number: FR-MERCK-0706FRA00069

PATIENT
  Age: 85 Year
  Sex: Male

DRUGS (2)
  1. NOROXIN [Suspect]
     Indication: URINARY TRACT INFECTION
     Route: 048
  2. HALOPERIDOL [Suspect]
     Route: 048

REACTIONS (4)
  - DERMATITIS BULLOUS [None]
  - DRUG ERUPTION [None]
  - SEPTIC SHOCK [None]
  - TOXIC EPIDERMAL NECROLYSIS [None]
